FAERS Safety Report 4441839-6 (Version None)
Quarter: 2004Q3

REPORT INFORMATION
  Report Type: 
  Country: None (occurrence: None)
  Receive Date: 20040907
  Receipt Date: 20040820
  Transmission Date: 20050211
  Serious: Yes (Hospitalization)
  Sender: FDA-Public Use
  Company Number: 238797

PATIENT
  Sex: Male

DRUGS (2)
  1. NOVOMIX 30 FLEX PEN (INSULIN ASPART)SUSPENSION FOR INJECTION, 100U/ML [Suspect]
     Indication: ILL-DEFINED DISORDER
  2. RAMIPRIL [Concomitant]

REACTIONS (3)
  - BLOOD POTASSIUM INCREASED [None]
  - FEELING ABNORMAL [None]
  - NEPHROLITHIASIS [None]
